FAERS Safety Report 6726093-4 (Version None)
Quarter: 2010Q2

REPORT INFORMATION
  Report Type: 
  Country: None (occurrence: None)
  Receive Date: 20100514
  Receipt Date: 20100507
  Transmission Date: 20101027
  Serious: Yes (Death)
  Sender: FDA-Public Use
  Company Number: NL-TEVA-234192ISR

PATIENT
  Sex: Female
  Weight: 50 kg

DRUGS (15)
  1. PREDNISOLONE [Suspect]
     Indication: NON-HODGKIN'S LYMPHOMA
     Route: 048
     Dates: start: 20070524
  2. VINCRISTINE [Suspect]
     Indication: NON-HODGKIN'S LYMPHOMA
     Dates: start: 20070524
  3. RITUXIMAB [Suspect]
     Indication: NON-HODGKIN'S LYMPHOMA
     Dates: start: 20070524, end: 20080417
  4. RITUXIMAB [Suspect]
     Dates: start: 20080605
  5. FLUDARABINE PHOSPHATE [Suspect]
     Indication: NON-HODGKIN'S LYMPHOMA
     Dates: start: 20080506
  6. CYCLOPHOSPHAMIDE [Suspect]
     Indication: NON-HODGKIN'S LYMPHOMA
     Dates: start: 20070524
  7. CYCLOPHOSPHAMIDE [Suspect]
     Dates: start: 20080605
  8. CHLORAMBUCIL [Suspect]
     Indication: NON-HODGKIN'S LYMPHOMA
     Dates: start: 20061222, end: 20070424
  9. CHLORAMBUCIL [Suspect]
     Dates: start: 20070524, end: 20071018
  10. DEXAMETHASONE [Suspect]
     Dates: start: 20061222, end: 20070424
  11. DEXAMETHASONE [Suspect]
     Dates: start: 20070524, end: 20071018
  12. BACTRIM [Concomitant]
     Dates: start: 20080605, end: 20090226
  13. GALENIC /DORZOLAMIDE/TIMOLOL/ [Concomitant]
     Dates: start: 20090201
  14. LATANOPROST [Concomitant]
     Dates: start: 20090201
  15. FOLIC ACID [Concomitant]
     Dates: start: 20080605, end: 20090226

REACTIONS (2)
  - DEATH [None]
  - LEUKOENCEPHALOPATHY [None]
